FAERS Safety Report 5057575-1 (Version None)
Quarter: 2006Q3

REPORT INFORMATION
  Report Type: 
  Country: None (occurrence: None)
  Receive Date: 20060721
  Receipt Date: 20051205
  Transmission Date: 20061208
  Serious: No
  Sender: FDA-Public Use
  Company Number: US-GLAXOSMITHKLINE-A0584657A

PATIENT
  Age: 81 Year
  Sex: Female

DRUGS (10)
  1. AVANDIA [Suspect]
     Dosage: 2MG PER DAY
     Route: 048
     Dates: start: 20050701
  2. PREDNISONE [Concomitant]
  3. FOSAMAX [Concomitant]
  4. PLAQUENIL [Concomitant]
  5. PREVACID [Concomitant]
  6. AVAPRO [Concomitant]
  7. ASPIRIN [Concomitant]
  8. OSTEO BIFLEX [Concomitant]
  9. ENALAPRIL MALEATE [Concomitant]
  10. FOLTX [Concomitant]

REACTIONS (1)
  - ALOPECIA [None]
